FAERS Safety Report 19364247 (Version 2)
Quarter: 2021Q3

REPORT INFORMATION
  Report Type: Report from Study
  Country: CA (occurrence: CA)
  Receive Date: 20210602
  Receipt Date: 20210825
  Transmission Date: 20211014
  Serious: Yes (Other)
  Sender: FDA-Public Use
  Company Number: CA-JNJFOC-20210555405

PATIENT
  Age: 39 Year
  Sex: Female

DRUGS (1)
  1. REMICADE [Suspect]
     Active Substance: INFLIXIMAB
     Indication: COLITIS ULCERATIVE
     Dosage: PATIENT RECEIVED 21TH INFLIXIMAB INFUSION FOR DOSE OF 800. ON 19?AUG?2021, PARTIAL MAYO WAS COMPLETE
     Route: 042
     Dates: start: 20191030

REACTIONS (7)
  - Frequent bowel movements [Unknown]
  - Dizziness [Recovered/Resolved]
  - COVID-19 [Unknown]
  - Infusion related reaction [Recovered/Resolved]
  - Haematochezia [Not Recovered/Not Resolved]
  - Chest discomfort [Recovered/Resolved]
  - Chest pain [Recovered/Resolved]

NARRATIVE: CASE EVENT DATE: 2021
